FAERS Safety Report 26098001 (Version 1)
Quarter: 2025Q4

REPORT INFORMATION
  Report Type: Spontaneous
  Country: EU (occurrence: EU)
  Receive Date: 20251127
  Receipt Date: 20251127
  Transmission Date: 20260118
  Serious: Yes (Hospitalization)
  Sender: NOVARTIS
  Company Number: EU-DCGMA-25206117

PATIENT
  Age: 65 Year
  Sex: Female
  Weight: 66 kg

DRUGS (1)
  1. SIPONIMOD [Suspect]
     Active Substance: SIPONIMOD
     Indication: Secondary progressive multiple sclerosis
     Dosage: 2 MG
     Route: 048
     Dates: start: 2022, end: 2025

REACTIONS (5)
  - Encephalitis [Recovered/Resolved]
  - Headache [Recovered/Resolved]
  - Sensory level abnormal [Recovered/Resolved]
  - Hemianopia homonymous [Recovered/Resolved]
  - Ataxia [Recovered/Resolved]

NARRATIVE: CASE EVENT DATE: 20250914
